FAERS Safety Report 11467649 (Version 1)
Quarter: 2015Q3

REPORT INFORMATION
  Report Type: Spontaneous
  Country: JP (occurrence: JP)
  Receive Date: 20150908
  Receipt Date: 20150908
  Transmission Date: 20151125
  Serious: Yes (Other)
  Sender: FDA-Public Use
  Company Number: JP-MALLINCKRODT-T201504239

PATIENT
  Age: 79 Year
  Sex: Male
  Weight: 56 kg

DRUGS (12)
  1. DEPAKENE [Concomitant]
     Active Substance: VALPROIC ACID
     Dosage: 400 MG
     Route: 048
     Dates: end: 20150305
  2. MAGMITT [Concomitant]
     Active Substance: MAGNESIUM OXIDE
     Dosage: 990 MG
     Route: 048
     Dates: end: 20150304
  3. SEROQUEL [Concomitant]
     Active Substance: QUETIAPINE FUMARATE
     Dosage: 50 MG
     Route: 048
     Dates: start: 20150305, end: 20150307
  4. METHADONE [Suspect]
     Active Substance: METHADONE HYDROCHLORIDE
     Indication: CANCER PAIN
     Dosage: 10 MG, (20 MG DAILY DOSE)
     Route: 048
     Dates: start: 20150304, end: 20150304
  5. METHADONE [Suspect]
     Active Substance: METHADONE HYDROCHLORIDE
     Dosage: 5 MG, (10 MG DAILY DOSE)
     Route: 048
     Dates: start: 20150305, end: 20150307
  6. PARIET [Concomitant]
     Active Substance: RABEPRAZOLE SODIUM
     Dosage: 10 MG
     Route: 048
     Dates: end: 20150307
  7. AMLODIPINE [Concomitant]
     Active Substance: AMLODIPINE BESYLATE
     Dosage: 2.5 MG
     Route: 048
     Dates: end: 20150304
  8. SEROQUEL [Concomitant]
     Active Substance: QUETIAPINE FUMARATE
     Dosage: 100 MG
     Route: 048
     Dates: end: 20150304
  9. OXINORM [Concomitant]
     Active Substance: OXYCODONE HYDROCHLORIDE
     Indication: ANALGESIC THERAPY
     Dosage: 10-20 MG, PRN
     Route: 048
     Dates: start: 20150303
  10. BIO-THREE [Concomitant]
     Active Substance: HERBALS
     Dosage: 3 DF
     Route: 048
     Dates: end: 20150307
  11. LOXOPROFEN [Concomitant]
     Active Substance: LOXOPROFEN
     Indication: ANALGESIC THERAPY
     Dosage: 180 MG
     Route: 048
     Dates: end: 20150307
  12. CARNACULIN [Concomitant]
     Active Substance: KALLIDINOGENASE
     Dosage: 50 DF
     Route: 048
     Dates: end: 20150304

REACTIONS (2)
  - Delirium [Recovering/Resolving]
  - Sleep apnoea syndrome [Recovered/Resolved]

NARRATIVE: CASE EVENT DATE: 20150304
